FAERS Safety Report 6607941-5 (Version None)
Quarter: 2010Q1

REPORT INFORMATION
  Report Type: 
  Country: None (occurrence: None)
  Receive Date: 20100225
  Receipt Date: 20100225
  Transmission Date: 20100710
  Serious: Yes (Hospitalization)
  Sender: FDA-Public Use
  Company Number: None

PATIENT
  Age: 57 Year
  Sex: Male

DRUGS (2)
  1. WARFARIN SODIUM [Suspect]
     Dosage: 5 MG EVERY DAY PO
     Route: 048
  2. TRAMADOL HCL [Suspect]
     Dosage: 50 MG TID PO
     Route: 048

REACTIONS (8)
  - ARTHRALGIA [None]
  - FALL [None]
  - GRIP STRENGTH DECREASED [None]
  - HAEMORRHAGE INTRACRANIAL [None]
  - LETHARGY [None]
  - OEDEMA PERIPHERAL [None]
  - PAIN IN EXTREMITY [None]
  - PROTRUSION TONGUE [None]
